FAERS Safety Report 6232158-6 (Version None)
Quarter: 2009Q2

REPORT INFORMATION
  Report Type: 
  Country: None (occurrence: None)
  Receive Date: 20090617
  Receipt Date: 20090604
  Transmission Date: 20091009
  Serious: Yes (Life-Threatening)
  Sender: FDA-Public Use
  Company Number: GB-RANBAXY-2009RR-24839

PATIENT
  Age: 21 Year
  Sex: Male
  Weight: 69 kg

DRUGS (3)
  1. PARACETAMOL [Suspect]
     Indication: PREMEDICATION
     Dosage: 1 G, UNK
  2. FABRAZYME [Suspect]
     Indication: FABRY'S DISEASE
     Dosage: 70 MG, UNK
     Route: 042
     Dates: end: 20080804
  3. PIRITON [Concomitant]
     Indication: PREMEDICATION
     Dosage: 10 MG, UNK

REACTIONS (4)
  - ANAPHYLACTIC REACTION [None]
  - CHEST DISCOMFORT [None]
  - CHILLS [None]
  - DYSPNOEA [None]
